FAERS Safety Report 8522105-6 (Version None)
Quarter: 2012Q3

REPORT INFORMATION
  Report Type: 
  Country: None (occurrence: None)
  Receive Date: 20120719
  Receipt Date: 20120711
  Transmission Date: 20120928
  Serious: Yes (Hospitalization)
  Sender: FDA-Public Use
  Company Number: SE-JNJFOC-20100505266

PATIENT
  Age: 40 Year
  Sex: Female

DRUGS (4)
  1. IBUPROFEN [Concomitant]
  2. REMICADE [Suspect]
     Indication: ANKYLOSING SPONDYLITIS
     Dosage: DOSE ^100MG2^; 1ST DOSE
     Route: 042
     Dates: start: 20091005
  3. ACETAMINOPHEN [Concomitant]
  4. REMICADE [Suspect]
     Dosage: DOSE ^100MG2^; 2ND DOSE
     Route: 042
     Dates: start: 20091019

REACTIONS (3)
  - MYOPATHY [None]
  - SERUM SICKNESS [None]
  - MULTIPLE SCLEROSIS [None]
